FAERS Safety Report 8052478-2 (Version None)
Quarter: 2012Q1

REPORT INFORMATION
  Report Type: 
  Country: None (occurrence: None)
  Receive Date: 20120118
  Receipt Date: 20120111
  Transmission Date: 20120608
  Serious: Yes (Hospitalization)
  Sender: FDA-Public Use
  Company Number: FR-PFIZER INC-2012007779

PATIENT
  Age: 80 Year
  Sex: Male

DRUGS (21)
  1. SOTALOL HCL [Suspect]
     Dosage: 80 MG,DAILY
     Route: 048
     Dates: start: 20060101
  2. ARAVA [Suspect]
     Indication: RHEUMATOID ARTHRITIS
     Dosage: 20MG DAILY
     Route: 048
     Dates: start: 20080124, end: 20081203
  3. ARAVA [Suspect]
     Dosage: UNK
     Dates: end: 20081203
  4. CALCIUM CARBONATE [Concomitant]
     Dosage: UNK
     Dates: start: 20040101
  5. ACTONEL [Suspect]
     Indication: OSTEOPOROSIS PROPHYLAXIS
     Dosage: 35 MG, WEEKLY
     Route: 048
     Dates: start: 20040801, end: 20070101
  6. NEXIUM [Suspect]
     Indication: PROPHYLAXIS AGAINST GASTROINTESTINAL ULCER
     Dosage: 40 MG, 1X/DAY
     Route: 048
     Dates: start: 20060101, end: 20070901
  7. ARAVA [Suspect]
     Dosage: 20 MG, 1X/DAY
     Dates: start: 20080901
  8. HUMIRA [Suspect]
     Indication: RHEUMATOID ARTHRITIS
     Dosage: ONE INJECTION EVERY 15 DAYS FROM 29MAY2008 THEN ONE INJECTION EVERY 10 DAYS
     Dates: start: 20080529, end: 20110127
  9. TOCILIZUMAB [Suspect]
     Indication: RHEUMATOID ARTHRITIS
     Dosage: 600 MG, ONCE EVERY 4 WEEKS
     Dates: start: 20110127
  10. BIPHOSPHONATE [Concomitant]
  11. PROTELOS [Concomitant]
  12. METHOTREXATE [Suspect]
     Indication: RHEUMATOID ARTHRITIS
     Dosage: 7.5 MG, WEEKLY
     Dates: start: 20061201
  13. ACETAMINOPHEN [Suspect]
     Route: 048
  14. PANTOPRAZOLE SODIUM [Concomitant]
     Dosage: 20MG
     Dates: start: 20070901
  15. METHOTREXATE [Suspect]
     Dosage: UNK
     Dates: start: 20110726
  16. DOXAZOSIN MESYLATE [Suspect]
     Indication: PROSTATIC ADENOMA
     Dosage: 8 MG, 1X/DAY
     Route: 048
     Dates: start: 20081001
  17. PREDNISONE TAB [Suspect]
     Indication: RHEUMATOID ARTHRITIS
     Dosage: DOSE UNSPECIFIED THEN 5 MG DAILY FROM 05MAR2009
     Route: 048
     Dates: start: 20031001
  18. ACECLOFENAC [Suspect]
     Dosage: 100MG
     Route: 048
     Dates: start: 20080901
  19. PANTOPRAZOLE [Suspect]
     Indication: PROPHYLAXIS AGAINST GASTROINTESTINAL ULCER
     Dosage: 40MG DAILY
     Route: 048
     Dates: start: 20070901
  20. BONIVA [Suspect]
     Indication: OSTEOPOROSIS PROPHYLAXIS
     Dosage: UNK
     Route: 048
     Dates: start: 20090901, end: 20110301
  21. TRAMADOL HCL [Suspect]
     Dosage: UNK
     Route: 048
     Dates: start: 20081001

REACTIONS (1)
  - FEMUR FRACTURE [None]
